FAERS Safety Report 6094827-0 (Version None)
Quarter: 2009Q1

REPORT INFORMATION
  Report Type: 
  Country: None (occurrence: None)
  Receive Date: 20090225
  Receipt Date: 20090128
  Transmission Date: 20090719
  Serious: Yes (Other)
  Sender: FDA-Public Use
  Company Number: MC200900030

PATIENT

DRUGS (2)
  1. CLEVIPREX [Suspect]
     Indication: BLOOD PRESSURE INCREASED
     Dosage: 14-16 MG, HR, INTRAVENOUS
     Route: 042
  2. DIPRIVAN [Concomitant]

REACTIONS (1)
  - DRUG INEFFECTIVE [None]
